APPROVED DRUG PRODUCT: NABUMETONE
Active Ingredient: NABUMETONE
Strength: 500MG
Dosage Form/Route: TABLET;ORAL
Application: A219118 | Product #001 | TE Code: AB
Applicant: NOVITIUM PHARMA LLC
Approved: Jan 7, 2025 | RLD: No | RS: No | Type: RX